FAERS Safety Report 17979173 (Version 1)
Quarter: 2020Q3

REPORT INFORMATION
  Report Type: Spontaneous
  Country: US (occurrence: US)
  Receive Date: 20200703
  Receipt Date: 20200703
  Transmission Date: 20201103
  Serious: No
  Sender: FDA-Public Use
  Company Number: US-TELIGENT, INC-20200600034

PATIENT

DRUGS (2)
  1. GENTAMICIN SULFATE. [Suspect]
     Active Substance: GENTAMICIN SULFATE
     Indication: WOUND
     Dosage: UNK (USED ONLY ONCE)
     Route: 061
     Dates: start: 20200625
  2. GENTAMICIN SULFATE. [Suspect]
     Active Substance: GENTAMICIN SULFATE
     Indication: INFECTION

REACTIONS (2)
  - Malaise [Unknown]
  - Burning sensation [Unknown]

NARRATIVE: CASE EVENT DATE: 20200625
